FAERS Safety Report 5822778-2 (Version None)
Quarter: 2008Q3

REPORT INFORMATION
  Report Type: 
  Country: None (occurrence: None)
  Receive Date: 20080725
  Receipt Date: 20071009
  Transmission Date: 20090109
  Serious: No
  Sender: FDA-Public Use
  Company Number: US-AMGEN-KDL247652

PATIENT
  Sex: Male
  Weight: 81.7 kg

DRUGS (4)
  1. PROCRIT [Suspect]
     Indication: PRE-EXISTING DISEASE
     Dates: start: 20070801
  2. RIBAVIRIN [Concomitant]
     Dates: start: 20070601
  3. INTERFERON [Concomitant]
     Route: 058
     Dates: start: 20070601
  4. RETROVIR [Concomitant]

REACTIONS (3)
  - DYSPNOEA [None]
  - ERECTILE DYSFUNCTION [None]
  - HEART RATE INCREASED [None]
